FAERS Safety Report 7152728-0 (Version None)
Quarter: 2010Q4

REPORT INFORMATION
  Report Type: 
  Country: None (occurrence: None)
  Receive Date: 20101213
  Receipt Date: 20101201
  Transmission Date: 20110411
  Serious: Yes (Life-Threatening, Hospitalization)
  Sender: FDA-Public Use
  Company Number: DE-AMGEN-DEUSP2010006949

PATIENT

DRUGS (4)
  1. NEULASTA [Suspect]
     Indication: CHEMOTHERAPY
  2. DOCETAXEL [Concomitant]
     Indication: BREAST CANCER
  3. DOXORUBICIN [Concomitant]
     Indication: BREAST CANCER
  4. CYCLOPHOSPHAMIDE [Concomitant]
     Indication: BREAST CANCER

REACTIONS (2)
  - LEUKOPENIA [None]
  - THROMBOCYTOPENIA [None]
